FAERS Safety Report 7998212-3 (Version None)
Quarter: 2011Q4

REPORT INFORMATION
  Report Type: 
  Country: None (occurrence: None)
  Receive Date: 20111221
  Receipt Date: 20110413
  Transmission Date: 20120403
  Serious: No
  Sender: FDA-Public Use
  Company Number: US-GLAXOSMITHKLINE-A0922867A

PATIENT
  Sex: Male

DRUGS (2)
  1. LOVAZA [Suspect]
     Route: 048
     Dates: start: 20101001
  2. NO CONCURRENT MEDICATION [Concomitant]

REACTIONS (1)
  - GINGIVAL RECESSION [None]
